FAERS Safety Report 6711396-X (Version None)
Quarter: 2010Q2

REPORT INFORMATION
  Report Type: 
  Country: None (occurrence: None)
  Receive Date: 20100505
  Receipt Date: 20100426
  Transmission Date: 20101027
  Serious: Yes (Hospitalization)
  Sender: FDA-Public Use
  Company Number: US-JNJFOC-20100407597

PATIENT
  Sex: Female
  Weight: 68.04 kg

DRUGS (4)
  1. DURAGESIC-100 [Suspect]
     Indication: BACK PAIN
     Route: 062
  2. FENTANYL-100 [Suspect]
     Indication: BACK PAIN
     Route: 062
  3. DURAGESIC-100 [Suspect]
     Route: 062
  4. DILAUDID [Concomitant]
     Indication: PAIN
     Route: 048

REACTIONS (7)
  - ASTHENIA [None]
  - CEREBRAL THROMBOSIS [None]
  - CEREBROVASCULAR ACCIDENT [None]
  - DRUG DOSE OMISSION [None]
  - HYPOTENSION [None]
  - VISUAL IMPAIRMENT [None]
  - WRONG TECHNIQUE IN DRUG USAGE PROCESS [None]
